FAERS Safety Report 19894576 (Version 1)
Quarter: 2021Q3

REPORT INFORMATION
  Report Type: Report from Study
  Country: CN (occurrence: CN)
  Receive Date: 20210928
  Receipt Date: 20210928
  Transmission Date: 20211014
  Serious: Yes (Hospitalization, Other)
  Sender: FDA-Public Use
  Company Number: CN-GILEAD-2021-0549977

PATIENT
  Age: 47 Year
  Sex: Male

DRUGS (1)
  1. ADEFOVIR DIPIVOXIL. [Suspect]
     Active Substance: ADEFOVIR DIPIVOXIL
     Indication: HEPATITIS B
     Route: 048

REACTIONS (5)
  - Hypophosphataemic osteomalacia [Recovered/Resolved]
  - Osteoporosis [Recovered/Resolved]
  - Abdominal pain upper [Recovered/Resolved]
  - Rib fracture [Recovered/Resolved]
  - Bone pain [Recovered/Resolved]
